FAERS Safety Report 8114117-1 (Version None)
Quarter: 2012Q1

REPORT INFORMATION
  Report Type: 
  Country: None (occurrence: None)
  Receive Date: 20120204
  Receipt Date: 20120125
  Transmission Date: 20120608
  Serious: Yes (Hospitalization)
  Sender: FDA-Public Use
  Company Number: FR-ASTRAZENECA-2011SE78756

PATIENT
  Age: 33 Year
  Sex: Male

DRUGS (9)
  1. QUETIAPINE FUMARATE [Suspect]
     Indication: SCHIZOAFFECTIVE DISORDER
     Route: 048
     Dates: start: 20111222, end: 20111201
  2. EQUANIL [Concomitant]
  3. QUETIAPINE FUMARATE [Suspect]
     Route: 048
     Dates: start: 20111201, end: 20120101
  4. PROZAC [Concomitant]
     Route: 048
  5. ABILIFY [Concomitant]
     Dates: end: 20120118
  6. SOLIAN [Concomitant]
     Route: 048
     Dates: end: 20120120
  7. NOCTAMIDE [Concomitant]
  8. QUETIAPINE FUMARATE [Suspect]
     Route: 048
     Dates: start: 20120101
  9. URBANYL [Concomitant]
     Route: 048

REACTIONS (5)
  - PANIC ATTACK [None]
  - ANXIETY [None]
  - FEELING ABNORMAL [None]
  - FATIGUE [None]
  - INSOMNIA [None]
